FAERS Safety Report 5192808-2 (Version None)
Quarter: 2006Q4

REPORT INFORMATION
  Report Type: 
  Country: None (occurrence: None)
  Receive Date: 20061228
  Receipt Date: 20051107
  Transmission Date: 20070319
  Serious: No
  Sender: FDA-Public Use
  Company Number: US-GLAXOSMITHKLINE-A0581215A

PATIENT
  Age: 8 Year
  Sex: Male

DRUGS (2)
  1. FLONASE [Suspect]
     Dosage: 1SPR PER DAY
     Route: 045
     Dates: start: 20030801, end: 20050501
  2. ZYRTEC [Concomitant]

REACTIONS (2)
  - MUSCULAR WEAKNESS [None]
  - THERAPEUTIC RESPONSE UNEXPECTED [None]
